FAERS Safety Report 6643410-4 (Version None)
Quarter: 2010Q1

REPORT INFORMATION
  Report Type: 
  Country: None (occurrence: None)
  Receive Date: 20100319
  Receipt Date: 20100308
  Transmission Date: 20100710
  Serious: Yes (Death, Other)
  Sender: FDA-Public Use
  Company Number: JP-WATSON-2010-02562

PATIENT
  Age: 76 Year
  Sex: Female

DRUGS (1)
  1. PREDNISOLONE [Suspect]
     Indication: SERONEGATIVE ARTHRITIS
     Dosage: 5 MG, DAILY
     Route: 065

REACTIONS (2)
  - CD4 LYMPHOCYTES DECREASED [None]
  - KAPOSI'S SARCOMA [None]
